FAERS Safety Report 17699782 (Version 2)
Quarter: 2020Q2

REPORT INFORMATION
  Report Type: Spontaneous
  Country: US (occurrence: US)
  Receive Date: 20200423
  Receipt Date: 20200511
  Transmission Date: 20200714
  Serious: Yes (Death)
  Sender: FDA-Public Use
  Company Number: US-SIGMAPHARM LABORATORIES, LLC-2020SIG00046

PATIENT
  Sex: Female

DRUGS (1)
  1. AMBRISENTAN [Suspect]
     Active Substance: AMBRISENTAN
     Dosage: 5 MG

REACTIONS (2)
  - Product use issue [Unknown]
  - Death [Fatal]
